FAERS Safety Report 6993743-7 (Version None)
Quarter: 2010Q3

REPORT INFORMATION
  Report Type: 
  Country: None (occurrence: None)
  Receive Date: 20100917
  Receipt Date: 20100301
  Transmission Date: 20110219
  Serious: Yes (Other)
  Sender: FDA-Public Use
  Company Number: US-ASTRAZENECA-2009UW20817

PATIENT
  Sex: Female

DRUGS (6)
  1. SEROQUEL [Suspect]
     Route: 048
     Dates: start: 20061013
  2. ALPRAZOLAM [Concomitant]
     Dates: start: 20060903
  3. HYDROCODONE BITARTRATE AND ACETAMINOPHEN [Concomitant]
     Dosage: 7.5-500 MG
     Dates: start: 20061013
  4. EFFEXOR XR [Concomitant]
     Dates: start: 20061120
  5. ZYPREXA [Concomitant]
     Dates: start: 20061120
  6. AMOXICILLIN [Concomitant]
     Dates: start: 20061130

REACTIONS (3)
  - DIABETES MELLITUS [None]
  - KETOACIDOSIS [None]
  - PANCREATITIS [None]
